FAERS Safety Report 8518177-5 (Version None)
Quarter: 2012Q3

REPORT INFORMATION
  Report Type: 
  Country: None (occurrence: None)
  Receive Date: 20120718
  Receipt Date: 20111018
  Transmission Date: 20120928
  Serious: No
  Sender: FDA-Public Use
  Company Number: US-BRISTOL-MYERS SQUIBB COMPANY-16175101

PATIENT
  Age: 86 Year
  Sex: Male
  Weight: 77 kg

DRUGS (2)
  1. REVLIMID [Suspect]
     Indication: MYELOFIBROSIS
     Dosage: DOSAGE: DAILY FOR 21DAYS AND 7DAYS OFF
     Route: 048
     Dates: start: 20110528
  2. COUMADIN [Suspect]

REACTIONS (1)
  - ECCHYMOSIS [None]
